FAERS Safety Report 14235987 (Version 4)
Quarter: 2018Q1

REPORT INFORMATION
  Report Type: Spontaneous
  Country: US (occurrence: US)
  Receive Date: 20171129
  Receipt Date: 20180112
  Transmission Date: 20180508
  Serious: Yes (Hospitalization)
  Sender: FDA-Public Use
  Company Number: US-UNITED THERAPEUTICS-UNT-2017-016345

PATIENT
  Age: 64 Year
  Sex: Female

DRUGS (4)
  1. REMODULIN [Suspect]
     Active Substance: TREPROSTINIL
     Dosage: UNK
     Route: 058
     Dates: start: 20170808
  2. REMODULIN [Suspect]
     Active Substance: TREPROSTINIL
     Indication: PULMONARY ARTERIAL HYPERTENSION
     Dosage: 0.056 ?G/KG, CONTINUING
     Route: 058
     Dates: start: 20100626
  3. REMODULIN [Suspect]
     Active Substance: TREPROSTINIL
     Dosage: 0.0573 ?G/KG, CONTINUING
     Route: 058
     Dates: start: 20130507
  4. FLOLAN [Concomitant]
     Active Substance: EPOPROSTENOL SODIUM
     Indication: PRODUCT USED FOR UNKNOWN INDICATION
     Dosage: UNK
     Route: 065

REACTIONS (10)
  - Infusion site pain [Recovered/Resolved]
  - Nausea [Unknown]
  - Restlessness [Unknown]
  - Dyspnoea exertional [Unknown]
  - Malaise [Unknown]
  - Headache [Unknown]
  - Diarrhoea [Unknown]
  - Product container issue [Unknown]
  - Oesophageal mucosal tear [Recovered/Resolved]
  - Pain in jaw [Unknown]

NARRATIVE: CASE EVENT DATE: 2017
